FAERS Safety Report 8083649-7 (Version None)
Quarter: 2012Q1

REPORT INFORMATION
  Report Type: 
  Country: None (occurrence: None)
  Receive Date: 20120127
  Receipt Date: 20110111
  Transmission Date: 20120608
  Serious: No
  Sender: FDA-Public Use
  Company Number: US-ABBOTT-11P-163-0696729-00

PATIENT
  Sex: Female
  Weight: 53.572 kg

DRUGS (9)
  1. RECLAST [Concomitant]
     Indication: OSTEOPOROSIS
  2. VENTOLIN [Concomitant]
     Indication: ASTHMA
  3. HUMIRA [Suspect]
     Indication: CROHN'S DISEASE
     Dates: start: 20101120, end: 20101230
  4. ADVAIR DISKUS 100/50 [Concomitant]
     Indication: ASTHMA
  5. AMLODIPINE [Concomitant]
     Indication: PRODUCT USED FOR UNKNOWN INDICATION
  6. LOSARTAN POTASSIUM [Concomitant]
     Indication: HYPERTENSION
  7. OMEPRAZOLE [Concomitant]
     Indication: GASTROOESOPHAGEAL REFLUX DISEASE
  8. SPIRIVA [Concomitant]
     Indication: ASTHMA
  9. ALBUTEROL [Concomitant]
     Indication: ASTHMA

REACTIONS (7)
  - ARTHRALGIA [None]
  - BONE PAIN [None]
  - BURNING SENSATION [None]
  - DYSPNOEA [None]
  - FATIGUE [None]
  - UPPER RESPIRATORY TRACT INFECTION [None]
  - MYALGIA [None]
